FAERS Safety Report 15853942 (Version 1)
Quarter: 2019Q1

REPORT INFORMATION
  Report Type: Spontaneous
  Country: US (occurrence: US)
  Receive Date: 20190122
  Receipt Date: 20190122
  Transmission Date: 20190417
  Serious: No
  Sender: FDA-Public Use
  Company Number: US-PFIZER INC-2019023268

PATIENT
  Age: 92 Year
  Sex: Female
  Weight: 62.14 kg

DRUGS (1)
  1. ADVIL [Suspect]
     Active Substance: IBUPROFEN
     Dosage: 200 MG, 1X/DAY
     Route: 048

REACTIONS (3)
  - Dysphagia [Recovered/Resolved]
  - Foreign body in respiratory tract [Unknown]
  - Product size issue [Unknown]

NARRATIVE: CASE EVENT DATE: 20190113
